FAERS Safety Report 21484092 (Version 2)
Quarter: 2022Q4

REPORT INFORMATION
  Report Type: Spontaneous
  Country: US (occurrence: US)
  Receive Date: 20221020
  Receipt Date: 20221109
  Transmission Date: 20230113
  Serious: No
  Sender: FDA-Public Use
  Company Number: US-LUPIN PHARMACEUTICALS INC.-2022-11820

PATIENT

DRUGS (1)
  1. SOLOSEC [Suspect]
     Active Substance: SECNIDAZOLE
     Indication: Bacterial infection
     Dosage: UNK, SINGLE
     Route: 048
     Dates: start: 20221003, end: 20221003

REACTIONS (3)
  - Vomiting [Recovered/Resolved]
  - Alcohol interaction [Unknown]
  - Wrong technique in product usage process [Unknown]

NARRATIVE: CASE EVENT DATE: 20221004
